FAERS Safety Report 12040324 (Version 2)
Quarter: 2016Q1

REPORT INFORMATION
  Report Type: Spontaneous
  Country: US (occurrence: US)
  Receive Date: 20160208
  Receipt Date: 20160317
  Transmission Date: 20160526
  Serious: Yes (Other)
  Sender: FDA-Public Use
  Company Number: US-PFIZER INC-2015227493

PATIENT
  Age: 27 Year
  Sex: Female

DRUGS (8)
  1. SPRINTEC [Concomitant]
     Active Substance: ETHINYL ESTRADIOL\NORGESTIMATE
     Dosage: 1 DF, DAILY (0.25MG -35MCG)
     Route: 048
  2. PROZAC [Concomitant]
     Active Substance: FLUOXETINE HYDROCHLORIDE
     Indication: MOOD ALTERED
     Dosage: 10 MG, DAILY (AM)
     Route: 048
  3. AMOXICILLIN. [Concomitant]
     Active Substance: AMOXICILLIN
     Dosage: 500 MG, 2X/DAY
     Route: 048
  4. DOXYCYCLINE HYCLATE. [Concomitant]
     Active Substance: DOXYCYCLINE HYCLATE
     Dosage: 100 MG, 2X/DAY
  5. LYRICA [Suspect]
     Active Substance: PREGABALIN
     Dosage: 50 MG, 2X/DAY
     Route: 048
  6. CLINDAMYCIN PHOSPHATE. [Concomitant]
     Active Substance: CLINDAMYCIN PHOSPHATE
     Dosage: 1X/DAY
     Route: 061
  7. BENZOYL PEROXIDE. [Concomitant]
     Active Substance: BENZOYL PEROXIDE
     Dosage: 2X/DAY
  8. LYRICA [Suspect]
     Active Substance: PREGABALIN
     Dosage: 75 MG, 2X/DAY
     Route: 048

REACTIONS (2)
  - Immobile [Unknown]
  - Feeling abnormal [Unknown]
